FAERS Safety Report 7786629-1 (Version None)
Quarter: 2011Q3

REPORT INFORMATION
  Report Type: 
  Country: None (occurrence: None)
  Receive Date: 20110929
  Receipt Date: 20110922
  Transmission Date: 20111222
  Serious: Yes (Other)
  Sender: FDA-Public Use
  Company Number: DE-UCBSA-041955

PATIENT
  Sex: Male

DRUGS (3)
  1. OXCARBAZEPINE [Concomitant]
     Dosage: 900 MG - O - 1200MG
  2. ZONEGRAN [Concomitant]
  3. VIMPAT [Suspect]
     Dates: start: 20110201, end: 20110101

REACTIONS (2)
  - GRAND MAL CONVULSION [None]
  - DIZZINESS [None]
